FAERS Safety Report 8591798-X (Version None)
Quarter: 2012Q3

REPORT INFORMATION
  Report Type: 
  Country: None (occurrence: None)
  Receive Date: 20120814
  Receipt Date: 20120807
  Transmission Date: 20120928
  Serious: Yes (Other)
  Sender: FDA-Public Use
  Company Number: PHHY2012MX069619

PATIENT
  Sex: Female

DRUGS (1)
  1. EXFORGE [Suspect]
     Dosage: 1 TABLET (160/5 MG), DAILY

REACTIONS (4)
  - COLORECTAL CANCER METASTATIC [None]
  - METASTASES TO LUNG [None]
  - METASTASES TO BONE [None]
  - METASTASES TO LIVER [None]
